FAERS Safety Report 20475406 (Version 4)
Quarter: 2022Q1

REPORT INFORMATION
  Report Type: Report from Study
  Country: FR (occurrence: FR)
  Receive Date: 20220215
  Receipt Date: 20220308
  Transmission Date: 20220423
  Serious: Yes (Death, Hospitalization, Other)
  Sender: FDA-Public Use
  Company Number: FR-GILEAD-2021-0560764

PATIENT
  Sex: Female
  Weight: 85 kg

DRUGS (5)
  1. SACITUZUMAB GOVITECAN [Suspect]
     Active Substance: SACITUZUMAB GOVITECAN
     Indication: Breast cancer metastatic
     Dosage: 10 MG/KG, C1D1
     Route: 042
     Dates: start: 20211129
  2. SACITUZUMAB GOVITECAN [Suspect]
     Active Substance: SACITUZUMAB GOVITECAN
     Dosage: 10 MG/KG, C1D8
     Route: 042
     Dates: start: 20211207
  3. SACITUZUMAB GOVITECAN [Suspect]
     Active Substance: SACITUZUMAB GOVITECAN
     Dosage: 10 MG/KG, C2D1
     Route: 042
     Dates: start: 20211221
  4. SACITUZUMAB GOVITECAN [Suspect]
     Active Substance: SACITUZUMAB GOVITECAN
     Dosage: 10 MG/KG, C2D8
     Route: 042
     Dates: start: 20211229
  5. SACITUZUMAB GOVITECAN [Suspect]
     Active Substance: SACITUZUMAB GOVITECAN
     Dosage: 10 MG/KG, C3D1
     Route: 042
     Dates: start: 20220112, end: 20220112

REACTIONS (11)
  - Disease progression [Fatal]
  - Asthenia [Recovered/Resolved]
  - Asthenia [Recovered/Resolved]
  - Myalgia [Recovered/Resolved]
  - Headache [Recovered/Resolved]
  - Hypokalaemia [Recovered/Resolved]
  - Injection site haematoma [Unknown]
  - Neck pain [Recovered/Resolved]
  - Complication of device insertion [Unknown]
  - Unevaluable event [Unknown]
  - Off label use [Unknown]

NARRATIVE: CASE EVENT DATE: 20211130
